FAERS Safety Report 8758034 (Version 2)
Quarter: 2012Q4

REPORT INFORMATION
  Report Type: 
  Country: IL (occurrence: IL)
  Receive Date: 20120828
  Receipt Date: 20120930
  Transmission Date: 20130627
  Serious: Yes (Hospitalization)
  Sender: FDA-Public Use
  Company Number: IL-ELI_LILLY_AND_COMPANY-IL201208007274

PATIENT
  Age: 75 Year
  Sex: Male

DRUGS (9)
  1. CYMBALTA [Suspect]
     Dosage: UNK, unknown
     Dates: end: 20120206
  2. SAXAGLIPTIN [Concomitant]
     Indication: TYPE 2 DIABETES MELLITUS
     Dosage: UNK
     Dates: start: 20110303, end: 20120131
  3. LEVEMIR [Concomitant]
     Indication: TYPE 2 DIABETES MELLITUS
     Dosage: 24 IU, UNK
     Dates: end: 20110306
  4. LEVEMIR [Concomitant]
     Dosage: 22 IU, UNK
     Dates: start: 20110306
  5. ASPIRIN [Concomitant]
  6. VITAMIN B12 [Concomitant]
     Dosage: UNK
     Dates: start: 20111115
  7. NOVORAPID [Concomitant]
     Indication: TYPE 2 DIABETES MELLITUS
     Dosage: 4 IU, UNK
  8. NOVORAPID [Concomitant]
     Dosage: 6 IU, UNK
     Dates: start: 20110818
  9. PRAVASTATIN SODIUM [Concomitant]

REACTIONS (8)
  - Cardiac failure congestive [Not Recovered/Not Resolved]
  - Alanine aminotransferase increased [Recovered/Resolved]
  - Pneumonia [Recovered/Resolved]
  - Aspartate aminotransferase increased [Recovered/Resolved]
  - Bilirubin conjugated increased [Recovered/Resolved]
  - Blood alkaline phosphatase increased [Recovered/Resolved]
  - Blood bilirubin increased [Recovered/Resolved]
  - Gamma-glutamyltransferase increased [Recovered/Resolved]
